FAERS Safety Report 4880423-7 (Version None)
Quarter: 2006Q1

REPORT INFORMATION
  Report Type: 
  Country: None (occurrence: None)
  Receive Date: 20060113
  Receipt Date: 20060103
  Transmission Date: 20060701
  Serious: Yes (Other)
  Sender: FDA-Public Use
  Company Number: CH-ABBOTT-06P-151-0321170-00

PATIENT
  Age: 38 Year
  Sex: Female

DRUGS (6)
  1. KALETRA [Suspect]
     Indication: DRUG USE FOR UNKNOWN INDICATION
     Route: 048
     Dates: start: 20030901, end: 20050906
  2. KALETRA [Suspect]
     Route: 048
     Dates: start: 20051013, end: 20051115
  3. DIDANOSINE [Suspect]
     Indication: DRUG USE FOR UNKNOWN INDICATION
     Route: 048
     Dates: start: 20030901, end: 20050906
  4. DIDANOSINE [Suspect]
     Route: 048
     Dates: start: 20051013, end: 20051115
  5. TENOFOVIR [Suspect]
     Indication: DRUG USE FOR UNKNOWN INDICATION
     Route: 048
     Dates: start: 20030901, end: 20050906
  6. TENOFOVIR [Suspect]
     Route: 048
     Dates: start: 20051013, end: 20051115

REACTIONS (3)
  - BLOOD CREATINE PHOSPHOKINASE INCREASED [None]
  - MYALGIA [None]
  - MYOPATHY [None]
